FAERS Safety Report 5982897-7 (Version None)
Quarter: 2008Q4

REPORT INFORMATION
  Report Type: 
  Country: None (occurrence: None)
  Receive Date: 20081205
  Receipt Date: 20081205
  Transmission Date: 20090506
  Serious: Yes (Life-Threatening, Hospitalization)
  Sender: FDA-Public Use
  Company Number: None

PATIENT
  Age: 50 Year
  Sex: Female

DRUGS (1)
  1. KETAMINE HCL [Suspect]
     Dates: start: 20081007, end: 20081007

REACTIONS (3)
  - AGITATION [None]
  - HALLUCINATION [None]
  - RESPIRATORY RATE INCREASED [None]
